FAERS Safety Report 9246058 (Version 2)
Quarter: 2013Q3

REPORT INFORMATION
  Report Type: Report from Study
  Country: GB (occurrence: NZ)
  Receive Date: 20130422
  Receipt Date: 20130920
  Transmission Date: 20140515
  Serious: Yes (Hospitalization, Other)
  Sender: FDA-Public Use
  Company Number: PHHY2013NZ038353

PATIENT
  Age: 48 Year
  Sex: Female
  Weight: 61.3 kg

DRUGS (2)
  1. CLOZARIL [Suspect]
     Indication: SCHIZOPHRENIA
     Dosage: UNK
     Route: 048
     Dates: start: 20110329, end: 20120917
  2. OMEPRAZOLE [Concomitant]
     Indication: GASTROOESOPHAGEAL REFLUX DISEASE
     Dosage: 200 MG, BID
     Route: 048

REACTIONS (8)
  - Neuroleptic malignant syndrome [Recovered/Resolved with Sequelae]
  - Muscle rigidity [Unknown]
  - Blood pressure increased [Unknown]
  - Agitation [Unknown]
  - Blood creatine phosphokinase increased [Unknown]
  - White blood cell count increased [Unknown]
  - Neutrophil count increased [Unknown]
  - Platelet count increased [Unknown]
